FAERS Safety Report 10882819 (Version 1)
Quarter: 2015Q1

REPORT INFORMATION
  Report Type: Spontaneous
  Country: US (occurrence: US)
  Receive Date: 20150303
  Receipt Date: 20150303
  Transmission Date: 20150721
  Serious: Yes (Death, Other)
  Sender: FDA-Public Use
  Company Number: US-ASTELLAS-2015US006508

PATIENT
  Sex: Male

DRUGS (1)
  1. XTANDI [Suspect]
     Active Substance: ENZALUTAMIDE
     Indication: PROSTATE CANCER METASTATIC
     Dosage: UNK UNK, UNKNOWN FREQ.
     Route: 065
     Dates: start: 201007, end: 201406

REACTIONS (6)
  - Death [Fatal]
  - Weight increased [Unknown]
  - Abdominal distension [Unknown]
  - Discomfort [Unknown]
  - Dementia [Unknown]
  - Acute kidney injury [Unknown]
